FAERS Safety Report 13456859 (Version 1)
Quarter: 2017Q2

REPORT INFORMATION
  Report Type: Spontaneous
  Country: US (occurrence: US)
  Receive Date: 20170419
  Receipt Date: 20170419
  Transmission Date: 20170830
  Serious: No
  Sender: FDA-Public Use
  Company Number: GXBR2016US002212

PATIENT
  Sex: Male

DRUGS (1)
  1. DICLOXACILLIN CAPSULES, USP [Suspect]
     Active Substance: DICLOXACILLIN
     Indication: PRODUCT USED FOR UNKNOWN INDICATION
     Dosage: UNK DF, UNK
     Route: 063

REACTIONS (3)
  - Abdominal discomfort [Recovered/Resolved]
  - Exposure during breast feeding [Recovered/Resolved]
  - Crying [Recovered/Resolved]
